FAERS Safety Report 20990862 (Version 2)
Quarter: 2022Q3

REPORT INFORMATION
  Report Type: Report from Study
  Country: CA (occurrence: None)
  Receive Date: 20220622
  Receipt Date: 20220711
  Transmission Date: 20221027
  Serious: Yes (Other)
  Sender: FDA-Public Use
  Company Number: CA-ROCHE-3116005

PATIENT
  Age: 36 Year
  Sex: Male
  Weight: 58 kg

DRUGS (18)
  1. OCRELIZUMAB [Suspect]
     Active Substance: OCRELIZUMAB
     Indication: Relapsing-remitting multiple sclerosis
     Dosage: BASELINE (WEEK 1)?SHE RECEIVED HER NEXT DOSE OF BLINDED OCRELIZUMAB ON 27/DEC/2012 (WEEK 2).
     Route: 042
     Dates: start: 20121213, end: 20121213
  2. OCRELIZUMAB [Suspect]
     Active Substance: OCRELIZUMAB
     Dosage: WEEK 24?SHE RECEIVED HER NEXT DOSE OF BLINDED OCRELIZUMAB ON 12/NOV/2013 (WEEK 48 AND ON 29/APR/2014
     Route: 042
     Dates: start: 20130530, end: 20130530
  3. PLACEBO [Suspect]
     Active Substance: UNSPECIFIED INGREDIENT
     Indication: Relapsing-remitting multiple sclerosis
     Route: 058
     Dates: start: 20121213, end: 20121213
  4. PLACEBO [Suspect]
     Active Substance: UNSPECIFIED INGREDIENT
     Route: 058
     Dates: start: 20141015, end: 20141031
  5. INTERFERON BETA-1A [Suspect]
     Active Substance: INTERFERON BETA-1A
     Indication: Relapsing-remitting multiple sclerosis
     Route: 058
     Dates: start: 20121213, end: 20121213
  6. INTERFERON BETA-1A [Suspect]
     Active Substance: INTERFERON BETA-1A
     Route: 058
     Dates: start: 20141015, end: 20141031
  7. OCRELIZUMAB [Suspect]
     Active Substance: OCRELIZUMAB
     Indication: Relapsing-remitting multiple sclerosis
     Dosage: OLE-WEEK 0. HE RECEIVED NEXT DOE OF OPEN LABEL OCRELIZUMAB ON: 19/NOV/2014 (OLE-WEEK 2).?300 MG INFU
     Route: 042
     Dates: start: 20141103, end: 20141103
  8. OCRELIZUMAB [Suspect]
     Active Substance: OCRELIZUMAB
     Dosage: SUBSEQUENT DOSES OF OPEN LABEL OCRELIZUMAB WAS RECEIVED ON: 30/SEP/2015, 21/MAR/2016, 30/AUG/2016, 1
     Route: 042
     Dates: start: 20150424, end: 20150424
  9. METHYLPREDNISOLONE [Concomitant]
     Active Substance: METHYLPREDNISOLONE
     Indication: Premedication
     Dosage: SUBSEQUENT DOSES WERE RECEIVED ON: 27/DEC//2012, 30/MAY/2013, 12/NOV/2013, 29/APR/2014, 03/NOV/2014,
     Dates: start: 20121213, end: 20121213
  10. BENADRYL [Concomitant]
     Active Substance: DIPHENHYDRAMINE HYDROCHLORIDE
     Indication: Premedication
     Dosage: SUBSEQUENT DOSES WAS RECEIVED ON: 30/SEP/2015, 21/MAR/2016, 30/AUG/2016, 11/MAR/2017, 17/AUG/2017, 0
     Dates: start: 20150930, end: 20150930
  11. TYLENOL [Concomitant]
     Active Substance: ACETAMINOPHEN
     Indication: Premedication
     Dosage: SUBSEQUENT DOSES WAS RECEIVED ON: 21/MAR/2016, 30/AUG/2016, 11/MAR/2017, 17/AUG/2017, 06/FEB/2018, 1
     Dates: start: 20150930, end: 20150930
  12. TYLENOL [Concomitant]
     Active Substance: ACETAMINOPHEN
     Indication: Nasopharyngitis
     Dates: start: 20211008, end: 20211013
  13. CITALOPRAM [Concomitant]
     Active Substance: CITALOPRAM HYDROBROMIDE
     Indication: Depressed mood
     Dates: start: 20200406
  14. CITALOPRAM [Concomitant]
     Active Substance: CITALOPRAM HYDROBROMIDE
     Dates: start: 20181110, end: 20200405
  15. TRAZODONE [Concomitant]
     Active Substance: TRAZODONE HYDROCHLORIDE
     Indication: Insomnia
     Dates: start: 20200406
  16. RITALIN [Concomitant]
     Active Substance: METHYLPHENIDATE HYDROCHLORIDE
     Indication: Fatigue
     Dates: start: 20191204
  17. ACETAMINOPHEN [Concomitant]
     Active Substance: ACETAMINOPHEN
     Indication: Migraine
     Dates: start: 20130415
  18. OXYBUTYNIN [Concomitant]
     Active Substance: OXYBUTYNIN
     Dates: start: 20200519

REACTIONS (1)
  - Testis cancer [Not Recovered/Not Resolved]

NARRATIVE: CASE EVENT DATE: 20220511
